FAERS Safety Report 5198914-0 (Version None)
Quarter: 2006Q4

REPORT INFORMATION
  Report Type: 
  Country: None (occurrence: None)
  Receive Date: 20060925
  Receipt Date: 20060508
  Transmission Date: 20070319
  Serious: Yes (Other)
  Sender: FDA-Public Use
  Company Number: US-JNJFOC-20060502199

PATIENT
  Age: 14 Year
  Sex: Female

DRUGS (2)
  1. CONCERTA [Suspect]
     Indication: AUTISM
     Dosage: 72 MG, 1 IN 1 DAY, ORAL
     Route: 048
     Dates: end: 20060315
  2. CLONIDINE [Concomitant]

REACTIONS (1)
  - TIC [None]
